FAERS Safety Report 7222529-3 (Version None)
Quarter: 2010Q4

REPORT INFORMATION
  Report Type: 
  Country: None (occurrence: None)
  Receive Date: 20101126
  Receipt Date: 20100806
  Transmission Date: 20110411
  Serious: No
  Sender: FDA-Public Use
  Company Number: 313789

PATIENT
  Age: 55 Year
  Sex: Female

DRUGS (1)
  1. VICTOZA [Suspect]
     Indication: TYPE 2 DIABETES MELLITUS
     Dosage: SUBCUTANEOUS
     Route: 058
     Dates: start: 20100803

REACTIONS (4)
  - ABDOMINAL PAIN [None]
  - BACK PAIN [None]
  - HEAD DISCOMFORT [None]
  - SOMNOLENCE [None]
